FAERS Safety Report 24752503 (Version 2)
Quarter: 2024Q4

REPORT INFORMATION
  Report Type: Spontaneous
  Country: US (occurrence: US)
  Receive Date: 20241219
  Receipt Date: 20241228
  Transmission Date: 20250115
  Serious: No
  Sender: TEVA
  Company Number: US-TEVA-VS-3274874

PATIENT
  Age: 25 Year
  Sex: Male

DRUGS (1)
  1. UZEDY [Suspect]
     Active Substance: RISPERIDONE
     Indication: Schizophrenia
     Dosage: STRENGTH: 200 MG / 0.56 ML
     Route: 058
     Dates: start: 20241001

REACTIONS (5)
  - Soliloquy [Unknown]
  - Insurance issue [Unknown]
  - Anger [Unknown]
  - Feeling abnormal [Unknown]
  - Therapeutic response shortened [Unknown]

NARRATIVE: CASE EVENT DATE: 20241101
